FAERS Safety Report 8821455 (Version 1)
Quarter: 2012Q4

REPORT INFORMATION
  Report Type: 
  Country: GB (occurrence: GB)
  Receive Date: 20121002
  Receipt Date: 20121002
  Transmission Date: 20130627
  Serious: Yes (Other)
  Sender: FDA-Public Use
  Company Number: GB-ROCHE-1139684

PATIENT
  Sex: Female
  Weight: 69.6 kg

DRUGS (8)
  1. XOLAIR [Suspect]
     Indication: PRODUCT USED FOR UNKNOWN INDICATION
     Route: 058
  2. XOLAIR [Suspect]
     Route: 058
     Dates: start: 20120822
  3. BUDESONIDE [Concomitant]
  4. CETIRIZINE DIHYDROCHLORIDE [Concomitant]
  5. FLUTICASONE [Concomitant]
  6. PREDNISOLONE [Concomitant]
  7. SALBUTAMOL [Concomitant]
  8. MONTELUKAST [Concomitant]

REACTIONS (2)
  - Asthma [Recovered/Resolved]
  - Varicella [Recovered/Resolved]
